FAERS Safety Report 21586415 (Version 2)
Quarter: 2022Q4

REPORT INFORMATION
  Report Type: Spontaneous
  Country: US (occurrence: US)
  Receive Date: 20221112
  Receipt Date: 20221126
  Transmission Date: 20230113
  Serious: No
  Sender: FDA-Public Use
  Company Number: US-JNJFOC-20221104263

PATIENT
  Sex: Female

DRUGS (1)
  1. SIMPONI [Suspect]
     Active Substance: GOLIMUMAB
     Indication: Product used for unknown indication
     Dosage: 100MG/ML
     Route: 058
     Dates: start: 202207

REACTIONS (3)
  - Primary biliary cholangitis [Unknown]
  - Primary biliary cholangitis [Unknown]
  - Liver disorder [Unknown]
